FAERS Safety Report 7176693-5 (Version None)
Quarter: 2010Q4

REPORT INFORMATION
  Report Type: 
  Country: None (occurrence: None)
  Receive Date: 20101207
  Receipt Date: 20101025
  Transmission Date: 20110411
  Serious: Yes (Life-Threatening)
  Sender: FDA-Public Use
  Company Number: 54973

PATIENT
  Age: 1 Year
  Sex: Female
  Weight: 11.7935 kg

DRUGS (1)
  1. HYLAND'S TEETHING TABLETS [Suspect]
     Indication: TEETHING
     Dosage: USING NEW BTTL FOR 1 WK

REACTIONS (7)
  - DRY SKIN [None]
  - DYSPNOEA [None]
  - FLUSHING [None]
  - POOR QUALITY SLEEP [None]
  - PRODUCT QUALITY ISSUE [None]
  - PYREXIA [None]
  - SLEEP TERROR [None]
